FAERS Safety Report 12934729 (Version 1)
Quarter: 2016Q4

REPORT INFORMATION
  Report Type: Spontaneous
  Country: CN (occurrence: CN)
  Receive Date: 20161111
  Receipt Date: 20161111
  Transmission Date: 20170207
  Serious: Yes (Other)
  Sender: FDA-Public Use
  Company Number: CN-BRISTOL-MYERS SQUIBB COMPANY-BMS-2016-095136

PATIENT
  Age: 46 Year
  Sex: Female

DRUGS (1)
  1. BARACLUDE [Suspect]
     Active Substance: ENTECAVIR
     Indication: HEPATITIS B
     Dosage: 0.5 MG, QD
     Route: 048
     Dates: start: 20150614

REACTIONS (4)
  - Blood creatine phosphokinase increased [Unknown]
  - Blood immunoglobulin G increased [Unknown]
  - Sjogren^s syndrome [Unknown]
  - Proteinuria [Unknown]
